FAERS Safety Report 10904668 (Version 1)
Quarter: 2015Q1

REPORT INFORMATION
  Report Type: Spontaneous
  Country: US (occurrence: None)
  Receive Date: 20150304
  Receipt Date: 20150304
  Transmission Date: 20150721
  Serious: No
  Sender: FDA-Public Use
  Company Number: None

PATIENT
  Age: 56 Year
  Sex: Female
  Weight: 59.88 kg

DRUGS (7)
  1. ZICAM EXTREME CONGESTION RELIEF [Suspect]
     Active Substance: OXYMETAZOLINE HYDROCHLORIDE
     Indication: NASAL CONGESTION
     Dosage: 1 PUFF IN EACH NOSTROL ONCE DAILY INHALATION
     Route: 055
     Dates: start: 20150303, end: 20150303
  2. CALCIUM SUPPLEMENT [Concomitant]
     Active Substance: CALCIUM
  3. DIETER SUPPLEMENT [Concomitant]
  4. CIRCULATORY + HEART HEALTH [Concomitant]
  5. ZICAM EXTREME CONGESTION RELIEF [Suspect]
     Active Substance: OXYMETAZOLINE HYDROCHLORIDE
     Indication: NASOPHARYNGITIS
     Dosage: 1 PUFF IN EACH NOSTROL ONCE DAILY INHALATION
     Route: 055
     Dates: start: 20150303, end: 20150303
  6. VITAMIN D [Concomitant]
     Active Substance: CHOLECALCIFEROL
  7. KEY B VITAMINS + VITAMIN C [Concomitant]

REACTIONS (1)
  - Anosmia [None]

NARRATIVE: CASE EVENT DATE: 20150303
